FAERS Safety Report 5457317-1 (Version None)
Quarter: 2007Q3

REPORT INFORMATION
  Report Type: 
  Country: None (occurrence: None)
  Receive Date: 20070918
  Receipt Date: 20070215
  Transmission Date: 20080115
  Serious: Yes (Hospitalization, Disabling)
  Sender: FDA-Public Use
  Company Number: US-ASTRAZENECA-2007UW03056

PATIENT
  Age: 79 Year
  Sex: Female

DRUGS (2)
  1. SEROQUEL [Suspect]
     Route: 048
     Dates: start: 20061101, end: 20070201
  2. CLONAZEPAM [Concomitant]

REACTIONS (1)
  - TARDIVE DYSKINESIA [None]
